FAERS Safety Report 8402074-X (Version None)
Quarter: 2012Q2

REPORT INFORMATION
  Report Type: 
  Country: None (occurrence: None)
  Receive Date: 20120601
  Receipt Date: 20120529
  Transmission Date: 20120825
  Serious: Yes (Hospitalization, Other)
  Sender: FDA-Public Use
  Company Number: PHHO2009NL05955

PATIENT
  Sex: Male
  Weight: 99 kg

DRUGS (9)
  1. AMLODIPINE [Concomitant]
     Indication: HYPERTENSION
     Dosage: 10 MG, ONCE/SINGLE
     Dates: start: 19920101
  2. PREDNISOLONE [Suspect]
     Indication: SARCOIDOSIS
     Dosage: 40 MG, BID
     Route: 048
     Dates: start: 20100901, end: 20100913
  3. BLINDED ALISKIREN [Suspect]
     Indication: CARDIOVASCULAR DISORDER
     Dosage: CODE NOT BROKEN
     Route: 048
     Dates: start: 20080507
  4. AMLODIPINE [Concomitant]
     Indication: CARDIAC FAILURE
  5. FUROSEMIDE [Concomitant]
     Indication: CARDIAC FAILURE
  6. PLACEBO [Suspect]
     Indication: CARDIOVASCULAR DISORDER
     Dosage: CODE NOT BROKEN
     Route: 048
     Dates: start: 20080507
  7. BLINDED NO TREATMENT RECEIVED [Suspect]
     Indication: CARDIOVASCULAR DISORDER
     Dosage: CODE NOT BROKEN
     Route: 048
     Dates: start: 20080507
  8. FUROSEMIDE [Concomitant]
     Indication: HYPERTENSION
     Dosage: 20 MG, ONCE/SINGLE
     Dates: start: 20080701
  9. ATORVASTATIN CALCIUM [Concomitant]
     Indication: BLOOD CHOLESTEROL
     Dosage: 20 MG, ONCE/SINGLE
     Dates: start: 20080401

REACTIONS (5)
  - CHEST PAIN [None]
  - ANGINA PECTORIS [None]
  - ATRIAL FLUTTER [None]
  - ACUTE MYOCARDIAL INFARCTION [None]
  - SARCOIDOSIS [None]
